FAERS Safety Report 18770663 (Version 2)
Quarter: 2021Q1

REPORT INFORMATION
  Report Type: Spontaneous
  Country: CN (occurrence: CN)
  Receive Date: 20210122
  Receipt Date: 20210211
  Transmission Date: 20210419
  Serious: Yes (Hospitalization, Other)
  Sender: FDA-Public Use
  Company Number: CN-CIPLA LTD.-2021CN00300

PATIENT

DRUGS (5)
  1. TENOFOVIR DISOPROXIL [Suspect]
     Active Substance: TENOFOVIR DISOPROXIL
     Indication: HIV INFECTION
     Dosage: 300 MILLIGRAM, QD
     Route: 065
     Dates: start: 20190401, end: 20200328
  2. LOPINAVIR/RITONAVIR [Suspect]
     Active Substance: LOPINAVIR\RITONAVIR
     Indication: HIV INFECTION
     Dosage: 1 DOSAGE FORM (400 MG/100 MG), BID
     Route: 065
     Dates: start: 20200328
  3. LAMIVUDINE. [Suspect]
     Active Substance: LAMIVUDINE
     Indication: HIV INFECTION
     Dosage: 300 MILLIGRAM, QD
     Route: 065
     Dates: start: 20190401
  4. DOLUTEGRAVIR [Suspect]
     Active Substance: DOLUTEGRAVIR
     Indication: HIV INFECTION
     Dosage: 50 MILLIGRAM, QD
     Route: 065
     Dates: start: 20190401, end: 20200328
  5. ZIDOVUDINE. [Suspect]
     Active Substance: ZIDOVUDINE
     Indication: HIV INFECTION
     Dosage: 300 MILLIGRAM, BID, TWICE A DAY
     Route: 065
     Dates: start: 20200328

REACTIONS (3)
  - Immune reconstitution inflammatory syndrome [Recovered/Resolved]
  - Myasthenia gravis [Recovered/Resolved]
  - Orbital myositis [Recovering/Resolving]

NARRATIVE: CASE EVENT DATE: 2020
